FAERS Safety Report 6886124-8 (Version None)
Quarter: 2010Q3

REPORT INFORMATION
  Report Type: 
  Country: None (occurrence: None)
  Receive Date: 20100729
  Receipt Date: 20080922
  Transmission Date: 20110219
  Serious: No
  Sender: FDA-Public Use
  Company Number: US-PFIZER INC-2008065007

PATIENT
  Sex: Female
  Weight: 86.4 kg

DRUGS (3)
  1. CELEBREX [Suspect]
     Indication: ARTHRITIS
     Dates: start: 20080501
  2. NEXIUM [Concomitant]
  3. LEVOTHROID [Concomitant]

REACTIONS (1)
  - DIZZINESS [None]
